FAERS Safety Report 4450362-4 (Version None)
Quarter: 2004Q3

REPORT INFORMATION
  Report Type: 
  Country: None (occurrence: None)
  Receive Date: 20040914
  Receipt Date: 20040827
  Transmission Date: 20050211
  Serious: Yes (Life-Threatening)
  Sender: FDA-Public Use
  Company Number: A-CH2004-06952

PATIENT
  Age: 67 Year
  Sex: Female
  Weight: 62 kg

DRUGS (3)
  1. TRACLEER [Suspect]
     Indication: PULMONARY HYPERTENSION
     Dosage: 62.5 MG, BID, ORAL
     Route: 048
     Dates: start: 20040419
  2. ALTACAND (CANDESARTAN CILEXETIL) [Concomitant]
  3. NOVONORM (REPAGLINIDE) [Concomitant]

REACTIONS (3)
  - DYSPNOEA [None]
  - PERICARDIAL EFFUSION [None]
  - PERICARDIAL HAEMORRHAGE [None]
